FAERS Safety Report 7202370-8 (Version None)
Quarter: 2010Q4

REPORT INFORMATION
  Report Type: 
  Country: None (occurrence: None)
  Receive Date: 20101229
  Receipt Date: 20101220
  Transmission Date: 20110411
  Serious: No
  Sender: FDA-Public Use
  Company Number: US-PFIZER INC-2010176160

PATIENT
  Sex: Male
  Weight: 77.098 kg

DRUGS (1)
  1. CELEBREX [Suspect]
     Indication: HIP SURGERY
     Dosage: 200 MG, UNK
     Route: 048
     Dates: start: 20101208, end: 20101210

REACTIONS (1)
  - NAUSEA [None]
